FAERS Safety Report 10649064 (Version 1)
Quarter: 2014Q4

REPORT INFORMATION
  Report Type: Spontaneous
  Country: US (occurrence: None)
  Receive Date: 20141211
  Receipt Date: 20141211
  Transmission Date: 20150529
  Serious: Yes (Other)
  Sender: FDA-Public Use
  Company Number: None

PATIENT
  Age: 77 Year
  Sex: Male

DRUGS (6)
  1. CITALOPRAM [Concomitant]
     Active Substance: CITALOPRAM HYDROBROMIDE
  2. TASIGNA [Suspect]
     Active Substance: NILOTINIB
     Indication: CHRONIC LYMPHOCYTIC LEUKAEMIA
     Route: 048
     Dates: start: 20141111, end: 20141206
  3. NITROSTAT [Concomitant]
     Active Substance: NITROGLYCERIN
  4. ASPIRIN. [Concomitant]
     Active Substance: ASPIRIN
  5. METROMIN [Concomitant]
  6. LASIX [Concomitant]
     Active Substance: FUROSEMIDE

REACTIONS (5)
  - Dizziness [None]
  - Fatigue [None]
  - Headache [None]
  - Constipation [None]
  - Urine output decreased [None]

NARRATIVE: CASE EVENT DATE: 20141206
